FAERS Safety Report 19123981 (Version 3)
Quarter: 2021Q3

REPORT INFORMATION
  Report Type: Report from Study
  Country: SV (occurrence: SV)
  Receive Date: 20210412
  Receipt Date: 20210908
  Transmission Date: 20211014
  Serious: Yes (Other)
  Sender: FDA-Public Use
  Company Number: NVSC2021SV076684

PATIENT
  Sex: Male

DRUGS (4)
  1. SCAPHO [Suspect]
     Active Substance: SECUKINUMAB
     Indication: PSORIATIC ARTHROPATHY
     Dosage: 150 MG, Q2MO (SINCE JANUARY)
     Route: 058
  2. SCAPHO [Suspect]
     Active Substance: SECUKINUMAB
     Indication: ANKYLOSING SPONDYLITIS
     Dosage: 150 MG, QMO
     Route: 058
     Dates: start: 20190812
  3. SCAPHO [Suspect]
     Active Substance: SECUKINUMAB
     Dosage: 150 MG (ONCE EVERY 6 WEEKS)
     Route: 058
  4. SCAPHO [Suspect]
     Active Substance: SECUKINUMAB
     Dosage: 150 MG, EVERY 45 DAYS
     Route: 058

REACTIONS (3)
  - Inappropriate schedule of product administration [Not Recovered/Not Resolved]
  - Uveitis [Unknown]
  - Inappropriate schedule of product administration [Recovered/Resolved]
